FAERS Safety Report 8317029-3 (Version None)
Quarter: 2012Q2

REPORT INFORMATION
  Report Type: 
  Country: None (occurrence: None)
  Receive Date: 20120427
  Receipt Date: 20120420
  Transmission Date: 20120825
  Serious: Yes (Hospitalization)
  Sender: FDA-Public Use
  Company Number: FR-PFIZER INC-2012091212

PATIENT
  Age: 62 Year
  Sex: Male
  Weight: 76 kg

DRUGS (7)
  1. TEMSIROLIMUS [Suspect]
     Dosage: 25 MG, CYCLIC
     Dates: start: 20120402, end: 20120410
  2. DOXORUBICIN HCL [Suspect]
     Indication: MANTLE CELL LYMPHOMA REFRACTORY
     Dosage: UNK
     Dates: start: 20120319
  3. CYCLOPHOSPHAMIDE [Suspect]
     Indication: MANTLE CELL LYMPHOMA REFRACTORY
     Dosage: UNK
     Dates: start: 20120319
  4. VINCRISTINE SULFATE [Suspect]
     Indication: MANTLE CELL LYMPHOMA REFRACTORY
  5. PREDNISONE [Suspect]
     Indication: MANTLE CELL LYMPHOMA REFRACTORY
  6. RITUXIMAB [Suspect]
     Indication: MANTLE CELL LYMPHOMA REFRACTORY
     Dosage: UNK
     Dates: start: 20120319
  7. TEMSIROLIMUS [Suspect]
     Indication: MANTLE CELL LYMPHOMA REFRACTORY
     Dosage: UNK
     Dates: start: 20120229

REACTIONS (1)
  - PNEUMOCYSTIS JIROVECI PNEUMONIA [None]
